FAERS Safety Report 6248535-3 (Version None)
Quarter: 2009Q2

REPORT INFORMATION
  Report Type: 
  Country: None (occurrence: None)
  Receive Date: 20090624
  Receipt Date: 20090624
  Transmission Date: 20091009
  Serious: Yes (Disabling, Other)
  Sender: FDA-Public Use
  Company Number: None

PATIENT
  Age: 51 Year
  Sex: Female
  Weight: 63.5036 kg

DRUGS (1)
  1. PROLIXIN [Suspect]
     Dosage: 1 TIME
     Dates: start: 20090527

REACTIONS (22)
  - BODY TEMPERATURE INCREASED [None]
  - CONSTIPATION [None]
  - DIARRHOEA [None]
  - DISTURBANCE IN ATTENTION [None]
  - DIZZINESS [None]
  - DYSPAREUNIA [None]
  - EAR PAIN [None]
  - FAECES DISCOLOURED [None]
  - FATIGUE [None]
  - HYPERTENSION [None]
  - INJECTION SITE ERYTHEMA [None]
  - IRRITABILITY [None]
  - JOINT SWELLING [None]
  - MOOD SWINGS [None]
  - MYALGIA [None]
  - NERVOUSNESS [None]
  - PAIN IN EXTREMITY [None]
  - PALPITATIONS [None]
  - SALIVARY HYPERSECRETION [None]
  - SPEECH DISORDER [None]
  - STEATORRHOEA [None]
  - VISUAL IMPAIRMENT [None]
